FAERS Safety Report 13910302 (Version 1)
Quarter: 2017Q3

REPORT INFORMATION
  Report Type: Spontaneous
  Country: FI (occurrence: FI)
  Receive Date: 20170828
  Receipt Date: 20170828
  Transmission Date: 20171127
  Serious: Yes (Other)
  Sender: FDA-Public Use
  Company Number: FI-CELGENEUS-FIN-20170804758

PATIENT
  Sex: Female

DRUGS (3)
  1. ABRAXANE [Suspect]
     Active Substance: PACLITAXEL
     Indication: PRODUCT USED FOR UNKNOWN INDICATION
     Route: 041
     Dates: start: 20161202, end: 20170224
  2. GEMCITABINE [Concomitant]
     Active Substance: GEMCITABINE\GEMCITABINE HYDROCHLORIDE
     Route: 065
     Dates: start: 20161202, end: 20170224
  3. GEMCITABINE [Concomitant]
     Active Substance: GEMCITABINE\GEMCITABINE HYDROCHLORIDE
     Indication: PRODUCT USED FOR UNKNOWN INDICATION
     Route: 065
     Dates: start: 20170418, end: 20170531

REACTIONS (12)
  - Anxiety [Unknown]
  - Suicidal ideation [Unknown]
  - Ear pain [Unknown]
  - Pain in extremity [Unknown]
  - Insomnia [Unknown]
  - Dizziness [Unknown]
  - Head discomfort [Unknown]
  - Hypoaesthesia [Unknown]
  - Headache [Unknown]
  - Ear congestion [Unknown]
  - Ear discomfort [Unknown]
  - Gait disturbance [Unknown]

NARRATIVE: CASE EVENT DATE: 201612
